FAERS Safety Report 4298755-2 (Version None)
Quarter: 2004Q1

REPORT INFORMATION
  Report Type: 
  Country: None (occurrence: None)
  Receive Date: 20040126
  Receipt Date: 20030911
  Transmission Date: 20041129
  Serious: No
  Sender: FDA-Public Use
  Company Number: USA030946959

PATIENT
  Age: 11 Year
  Sex: Male

DRUGS (5)
  1. STRATTERA [Suspect]
     Dosage: 60 MG/DAY
  2. DEXTRO AMPHETAMINE SULFATE TAB [Concomitant]
  3. ALBUTEROL [Concomitant]
  4. FLOVENT [Concomitant]
  5. ZYRTEC [Concomitant]

REACTIONS (2)
  - CRYING [None]
  - EMOTIONAL DISTRESS [None]
